FAERS Safety Report 9109492 (Version 1)
Quarter: 2013Q1

REPORT INFORMATION
  Report Type: Spontaneous
  Country: US (occurrence: US)
  Receive Date: 20130222
  Receipt Date: 20130222
  Transmission Date: 20140127
  Serious: Yes (Other)
  Sender: FDA-Public Use
  Company Number: US-PFIZER INC-2013064749

PATIENT
  Age: 73 Year
  Sex: Female
  Weight: 87.08 kg

DRUGS (3)
  1. LYRICA [Suspect]
     Indication: NEUROPATHY PERIPHERAL
     Dosage: 50 MG, 3X/DAY
     Route: 048
     Dates: start: 2012
  2. LYRICA [Suspect]
     Indication: FIBROMYALGIA
  3. DICLOFENAC [Suspect]
     Indication: ARTHRITIS
     Dosage: 75 MG, 1X/DAY

REACTIONS (2)
  - Renal failure [Unknown]
  - Weight increased [Unknown]
